FAERS Safety Report 5369844-6 (Version None)
Quarter: 2007Q2

REPORT INFORMATION
  Report Type: 
  Country: None (occurrence: None)
  Receive Date: 20070621
  Receipt Date: 20070614
  Transmission Date: 20071010
  Serious: Yes (Death)
  Sender: FDA-Public Use
  Company Number: FABR-12039

PATIENT
  Age: 55 Year
  Sex: Male
  Weight: 68 kg

DRUGS (7)
  1. FABRAZYME [Suspect]
     Indication: FABRY'S DISEASE
     Dosage: 1 MG/KG Q2WKS IV
     Route: 042
     Dates: start: 20021122, end: 20070222
  2. OMIX [Concomitant]
  3. CELLCEPT [Concomitant]
  4. NEORAL [Concomitant]
  5. UNALFA [Concomitant]
  6. VASTIN [Concomitant]
  7. ALLOPURINOL [Concomitant]

REACTIONS (3)
  - ARTERITIS [None]
  - BRAIN STEM ISCHAEMIA [None]
  - CARDIAC FAILURE [None]
